FAERS Safety Report 9423406 (Version 5)
Quarter: 2014Q1

REPORT INFORMATION
  Report Type: Report from Study
  Country: CA (occurrence: CA)
  Receive Date: 20130726
  Receipt Date: 20140219
  Transmission Date: 20141002
  Serious: Yes (Hospitalization)
  Sender: FDA-Public Use
  Company Number: CA-UCBSA-092354

PATIENT
  Age: 64 Year
  Sex: Female
  Weight: 90 kg

DRUGS (2)
  1. CIMZIA [Suspect]
     Indication: CROHN^S DISEASE
     Route: 058
     Dates: start: 20120529, end: 201306
  2. CIMZIA [Suspect]
     Indication: CROHN^S DISEASE
     Dosage: 0-2-4 WEEKS
     Route: 058
     Dates: start: 20120417, end: 20120515

REACTIONS (4)
  - Gastrointestinal bacterial infection [Recovered/Resolved]
  - Cellulitis [Recovered/Resolved]
  - Psoas abscess [Recovered/Resolved]
  - Osteitis condensans [Recovered/Resolved]
